FAERS Safety Report 13177454 (Version 1)
Quarter: 2017Q1

REPORT INFORMATION
  Report Type: Report from Study
  Country: US (occurrence: US)
  Receive Date: 20170201
  Receipt Date: 20170201
  Transmission Date: 20170428
  Serious: No
  Sender: FDA-Public Use
  Company Number: US-EXELIXIS-CABO-16006319

PATIENT
  Sex: Male

DRUGS (2)
  1. COMETRIQ [Suspect]
     Active Substance: CABOZANTINIB S-MALATE
     Indication: THYROID CANCER
     Dosage: 80 MG, QD
     Route: 048
     Dates: start: 20160405
  2. MIDODRINE [Concomitant]
     Active Substance: MIDODRINE

REACTIONS (11)
  - Hair colour changes [Unknown]
  - Fatigue [Unknown]
  - Dehydration [Unknown]
  - Malnutrition [Unknown]
  - Secretion discharge [Unknown]
  - Upper-airway cough syndrome [Not Recovered/Not Resolved]
  - Dyspnoea [Not Recovered/Not Resolved]
  - Sinus disorder [Unknown]
  - Muscle strain [Not Recovered/Not Resolved]
  - Oropharyngeal pain [Not Recovered/Not Resolved]
  - Asthenia [Not Recovered/Not Resolved]
